FAERS Safety Report 6016812-7 (Version None)
Quarter: 2008Q4

REPORT INFORMATION
  Report Type: 
  Country: None (occurrence: None)
  Receive Date: 20081222
  Receipt Date: 20081215
  Transmission Date: 20090506
  Serious: Yes (Other)
  Sender: FDA-Public Use
  Company Number: FR-GILEAD-2008-0019512

PATIENT
  Sex: Male

DRUGS (2)
  1. TRUVADA [Suspect]
     Dates: start: 20080910, end: 20080920
  2. SUSTIVA [Suspect]
     Dates: start: 20080910, end: 20080920

REACTIONS (1)
  - STEVENS-JOHNSON SYNDROME [None]
